FAERS Safety Report 10204429 (Version 1)
Quarter: 2014Q2

REPORT INFORMATION
  Report Type: Spontaneous
  Country: BR (occurrence: BR)
  Receive Date: 20140529
  Receipt Date: 20140529
  Transmission Date: 20141212
  Serious: Yes (Other)
  Sender: FDA-Public Use
  Company Number: BR-ABBVIE-14P-020-1240309-00

PATIENT
  Age: 40 Year
  Sex: Female
  Weight: 58 kg

DRUGS (2)
  1. HUMIRA [Suspect]
     Indication: RHEUMATOID ARTHRITIS
     Route: 058
  2. DIPYRONE [Concomitant]
     Indication: DYSMENORRHOEA
     Route: 048

REACTIONS (2)
  - Osteoarthritis [Recovering/Resolving]
  - Visual impairment [Not Recovered/Not Resolved]
